FAERS Safety Report 9316357 (Version 1)
Quarter: 2012Q4

REPORT INFORMATION
  Report Type: Spontaneous
  Country: JP (occurrence: None)
  Receive Date: 20121204
  Receipt Date: 20121204
  Transmission Date: 20130627
  Serious: Yes (Death, Hospitalization)
  Sender: FDA-Public Use
  Company Number: JP-2012-3758

PATIENT
  Age: 65 Year
  Sex: Female

DRUGS (14)
  1. NAVELBINE (VINORELBINE TARTRATE) INFUSION [Suspect]
     Indication: BREAST CANCER
     Route: 042
     Dates: start: 20120911, end: 20120911
  2. NAVELBINE (VINORELBINE TARTRATE) INFUSION [Suspect]
     Indication: BREAST CANCER
     Route: 042
     Dates: start: 20121002, end: 20121002
  3. NAVELBINE (VINORELBINE TARTRATE) INFUSION [Suspect]
     Indication: BREAST CANCER
     Dates: start: 20121016, end: 20121016
  4. BIBW 2992 (AFATINIB) [Suspect]
     Indication: BREAST CANCER
     Dates: start: 20120912, end: 20121009
  5. BIBW 2992 (AFATINIB) [Suspect]
     Indication: BREAST CANCER
     Dates: start: 20121016, end: 20121022
  6. BROTIZOLAM (BROTIZOLAM) [Concomitant]
  7. TRAMAL (TRAMADOL HYDROCHLORIDE) [Concomitant]
  8. LOPERAMIDE HYDROCHLORIDE (LOPERAMIDE HYDROCHLORIDE) [Concomitant]
  9. PARENTERAL (CALCIUM CHLORIDE HEXAHYDRATE, POTASSIUM CHLORIDE, SODIUMA CETATE TRIHYDRATE, SODIUM CHLORIDE) [Concomitant]
  10. ALLOPURINOL (ALLOPURINOL) [Concomitant]
  11. AZ (AZULENE) [Concomitant]
  12. HIRUDOID (HEPARINOID) [Concomitant]
  13. RISPERIDONE (RISPERIDONE) [Concomitant]
  14. SOLDEM 1 (GLUCOSE, SODIUM CHLORIDE, SODIUM LACTATE) [Concomitant]

REACTIONS (4)
  - Pleural effusion [None]
  - Febrile neutropenia [None]
  - Malignant neoplasm progression [None]
  - Hypoalbuminaemia [None]
